FAERS Safety Report 9390374 (Version 4)
Quarter: 2013Q4

REPORT INFORMATION
  Report Type: Spontaneous
  Country: JP (occurrence: JP)
  Receive Date: 20130709
  Receipt Date: 20131007
  Transmission Date: 20140711
  Serious: Yes (Congenital Anomaly)
  Sender: FDA-Public Use
  Company Number: JP-ROCHE-1245396

PATIENT
  Sex: 0

DRUGS (6)
  1. ACTEMRA [Suspect]
     Indication: RHEUMATOID ARTHRITIS
     Dosage: DOSAGE IS UNCERTAIN.
     Route: 064
     Dates: start: 2011, end: 20110603
  2. ARAVA [Suspect]
     Indication: RHEUMATOID ARTHRITIS
     Dosage: DOSAGE IS UNCERTAIN.
     Route: 064
     Dates: start: 2011, end: 2011
  3. PREDNISOLONE [Concomitant]
     Indication: RHEUMATOID ARTHRITIS
     Dosage: UNCERTAIN DOSAGE (LESS THAN 5MG)
     Route: 064
     Dates: start: 2011
  4. GASTER D [Concomitant]
     Indication: RHEUMATOID ARTHRITIS
     Route: 064
     Dates: start: 2011, end: 20110603
  5. KENTAN [Concomitant]
     Indication: RHEUMATOID ARTHRITIS
     Dosage: DOSAGE IS UNCERTAIN.
     Route: 064
     Dates: start: 2011, end: 20110603
  6. METHOTREXATE [Concomitant]
     Indication: RHEUMATOID ARTHRITIS
     Dosage: DOSAGE IS UNCERTAIN.
     Route: 064
     Dates: start: 2011, end: 2011

REACTIONS (2)
  - Caudal regression syndrome [Recovering/Resolving]
  - Maternal exposure timing unspecified [Unknown]
